FAERS Safety Report 25415599 (Version 1)
Quarter: 2025Q2

REPORT INFORMATION
  Report Type: Spontaneous
  Country: US (occurrence: US)
  Receive Date: 20250610
  Receipt Date: 20250610
  Transmission Date: 20250717
  Serious: Yes (Death)
  Sender: SPECGX
  Company Number: US-SPECGX-T202501040

PATIENT

DRUGS (2)
  1. POSACONAZOLE [Suspect]
     Active Substance: POSACONAZOLE
     Indication: Antifungal prophylaxis
     Route: 065
  2. VENETOCLAX [Suspect]
     Active Substance: VENETOCLAX
     Indication: Acute myeloid leukaemia
     Route: 065

REACTIONS (1)
  - Bacterial sepsis [Fatal]
